FAERS Safety Report 7026778-9 (Version None)
Quarter: 2010Q4

REPORT INFORMATION
  Report Type: 
  Country: None (occurrence: None)
  Receive Date: 20101004
  Receipt Date: 20100923
  Transmission Date: 20110411
  Serious: Yes (Hospitalization)
  Sender: FDA-Public Use
  Company Number: FR-ROCHE-729469

PATIENT
  Sex: Female
  Weight: 51 kg

DRUGS (17)
  1. MYCOPHENOLATE MOFETIL [Suspect]
     Route: 048
     Dates: start: 20100511
  2. CERTICAN [Suspect]
     Route: 048
     Dates: start: 20100516, end: 20100923
  3. ROVALCYTE [Concomitant]
     Dosage: TEMPORARILY DISCONTINUED FROM 28 JUN TO 05 JULY 2010
     Dates: start: 20100521, end: 20100628
  4. AMLODIPINE [Concomitant]
     Dosage: TEMPORARILY DISCONTINUED FROM 29 JUN TO 6 JUL 2010
     Dates: start: 20100517, end: 20100629
  5. ELISOR [Concomitant]
     Dates: start: 20100522
  6. PHOSPHONEUROS [Concomitant]
     Dosage: TEMPORARILY DISCONTINUED FROM 30 JUN TO 1 JULY 2010
     Dates: start: 20100526, end: 20100630
  7. DIFFU K [Concomitant]
     Dosage: TDD: 6 DOSES
     Dates: start: 20100626
  8. MAG 2 [Concomitant]
     Dosage: TDD: 2 DOSES
     Dates: start: 20100702
  9. INIPOMP [Concomitant]
     Dates: start: 20100512
  10. BICARBONATE DE SODIUM [Concomitant]
     Dates: start: 20100702
  11. INSULATARD [Concomitant]
     Dosage: TDD: 20+9 IU
     Dates: start: 20100703, end: 20100806
  12. NOVORAPID [Concomitant]
     Dosage: TDD: 8+8+8 IU
     Dates: start: 20100628
  13. PIPERACILLIN AND TAZOBACTAM [Concomitant]
     Dates: start: 20100628, end: 20100719
  14. CIFLOX [Concomitant]
     Dates: start: 20100628, end: 20100718
  15. XYZAL [Concomitant]
     Dates: start: 20100919
  16. LANTUS [Concomitant]
     Dates: start: 20100901
  17. EPREX [Concomitant]
     Dates: start: 20100803

REACTIONS (1)
  - TRANSPLANT REJECTION [None]
